FAERS Safety Report 6369691-2 (Version None)
Quarter: 2009Q3

REPORT INFORMATION
  Report Type: 
  Country: None (occurrence: None)
  Receive Date: 20090923
  Receipt Date: 20090610
  Transmission Date: 20100115
  Serious: Yes (Hospitalization, Other)
  Sender: FDA-Public Use
  Company Number: FR-PFIZER INC-2009271073

PATIENT
  Age: 52 Year

DRUGS (18)
  1. ATARAX [Suspect]
     Indication: GENERAL ANAESTHESIA
     Dosage: 50 MG
     Route: 048
     Dates: start: 20090227, end: 20090227
  2. ATARAX [Suspect]
     Indication: BLEPHAROPLASTY
  3. NIMBEX [Suspect]
     Indication: BLEPHAROPLASTY
     Dosage: 4 MG, ONCE
     Route: 042
     Dates: start: 20090227, end: 20090227
  4. NIMBEX [Suspect]
     Indication: GENERAL ANAESTHESIA
  5. DIPRIVAN [Suspect]
     Indication: BLEPHAROPLASTY
     Dosage: 90 MG, ONCE
     Route: 042
     Dates: start: 20090227, end: 20090227
  6. DIPRIVAN [Suspect]
     Indication: GENERAL ANAESTHESIA
  7. SUFENTANIL [Suspect]
     Indication: BLEPHAROPLASTY
     Dosage: 25 MG, ONCE
     Route: 042
     Dates: start: 20090227, end: 20090227
  8. SUFENTANIL [Suspect]
     Indication: GENERAL ANAESTHESIA
  9. HYPNOVEL [Suspect]
     Indication: BLEPHAROPLASTY
     Dosage: 2 MG, ONCE
     Route: 042
     Dates: start: 20090227, end: 20090227
  10. HYPNOVEL [Suspect]
     Indication: GENERAL ANAESTHESIA
  11. SEVOFLURANE [Suspect]
     Indication: GENERAL ANAESTHESIA
     Dosage: UNK
     Route: 055
     Dates: start: 20090227, end: 20090227
  12. SEVOFLURANE [Suspect]
     Indication: BLEPHAROPLASTY
  13. DEROXAT [Concomitant]
     Dosage: UNK
     Dates: start: 20090101, end: 20090101
  14. DEROXAT [Concomitant]
     Dosage: UNK
     Dates: start: 20090307
  15. LEXOMIL [Concomitant]
     Dosage: UNK
     Dates: start: 20090101, end: 20090101
  16. LEXOMIL [Concomitant]
     Dosage: UNK
     Dates: start: 20090307
  17. THERALENE [Concomitant]
     Dosage: UNK
     Dates: start: 20090101, end: 20090101
  18. THERALENE [Concomitant]
     Dosage: UNK
     Dates: start: 20090307

REACTIONS (6)
  - ANXIETY [None]
  - CONFUSIONAL STATE [None]
  - DELIRIUM [None]
  - FATIGUE [None]
  - MEMORY IMPAIRMENT [None]
  - TACHYPHRENIA [None]
